FAERS Safety Report 11153513 (Version 1)
Quarter: 2015Q2

REPORT INFORMATION
  Report Type: Spontaneous
  Country: US (occurrence: US)
  Receive Date: 20150602
  Receipt Date: 20150602
  Transmission Date: 20150821
  Serious: No
  Sender: FDA-Public Use
  Company Number: US-NOVEN PHARMACEUTICALS, INC.-14US009373

PATIENT
  Sex: Male

DRUGS (2)
  1. DAYTRANA [Suspect]
     Active Substance: METHYLPHENIDATE
     Dosage: 15 MG, UNK
     Route: 062
     Dates: start: 20140416
  2. DAYTRANA [Suspect]
     Active Substance: METHYLPHENIDATE
     Indication: PRODUCT USED FOR UNKNOWN INDICATION
     Dosage: 15 MG,  1 1/2 10MG
     Route: 062
     Dates: start: 2014

REACTIONS (3)
  - Disturbance in attention [Unknown]
  - Drug prescribing error [Not Recovered/Not Resolved]
  - Wrong technique in drug usage process [Not Recovered/Not Resolved]

NARRATIVE: CASE EVENT DATE: 2014
